FAERS Safety Report 8340399-7 (Version None)
Quarter: 2012Q2

REPORT INFORMATION
  Report Type: 
  Country: None (occurrence: None)
  Receive Date: 20120507
  Receipt Date: 20090615
  Transmission Date: 20120825
  Serious: Yes (Hospitalization)
  Sender: FDA-Public Use
  Company Number: US-TEVA-2009007304

PATIENT
  Sex: Male

DRUGS (8)
  1. FLOMAX [Concomitant]
  2. ACETAMINOFEN [Concomitant]
  3. TREANDA [Suspect]
     Route: 042
  4. RITUXIMAB [Suspect]
     Route: 042
  5. VELCADE [Suspect]
     Route: 042
  6. AZOR [Concomitant]
  7. GRANULOCYTE-COLONY STIMULATING FACTOR [Concomitant]
  8. ASPIRIN [Concomitant]

REACTIONS (1)
  - FEBRILE NEUTROPENIA [None]
